FAERS Safety Report 6160750-6 (Version None)
Quarter: 2009Q2

REPORT INFORMATION
  Report Type: 
  Country: None (occurrence: None)
  Receive Date: 20090416
  Receipt Date: 20090407
  Transmission Date: 20091009
  Serious: Yes (Other)
  Sender: FDA-Public Use
  Company Number: 242187

PATIENT
  Age: 56 Year
  Sex: Male

DRUGS (9)
  1. PACLITAXEL [Suspect]
     Indication: LUNG NEOPLASM MALIGNANT
     Dates: start: 20061110
  2. PACLITAXEL [Suspect]
     Indication: LUNG NEOPLASM MALIGNANT
     Dates: start: 20061201
  3. DOCTEXAL [Suspect]
     Indication: LUNG NEOPLASM MALIGNANT
     Dates: start: 20061222
  4. CARBOPLATIN [Concomitant]
  5. BEVACIZUMAB [Concomitant]
  6. METOCLOPRAMIE [Concomitant]
  7. PREDNISONE [Concomitant]
  8. CODEINE [Concomitant]
  9. OMEPRAZOLE [Concomitant]

REACTIONS (5)
  - ASPHYXIA [None]
  - CROSS SENSITIVITY REACTION [None]
  - HEART RATE INCREASED [None]
  - HYPERSENSITIVITY [None]
  - PALPITATIONS [None]
